FAERS Safety Report 4728253-0 (Version None)
Quarter: 2005Q3

REPORT INFORMATION
  Report Type: 
  Country: None (occurrence: None)
  Receive Date: 20050727
  Receipt Date: 20050714
  Transmission Date: 20060218
  Serious: Yes (Other)
  Sender: FDA-Public Use
  Company Number: HQWYE218714JUL05

PATIENT
  Age: 11 Week

DRUGS (1)
  1. TRIQUILAR (LEVONORGESTREL/ETHINYL ESTRADIOL) [Suspect]
     Route: 063
     Dates: start: 20050627

REACTIONS (2)
  - DRUG EXPOSURE VIA BREAST MILK [None]
  - HAEMATOCHEZIA [None]
